FAERS Safety Report 18987994 (Version 1)
Quarter: 2021Q1

REPORT INFORMATION
  Report Type: Spontaneous
  Country: US (occurrence: US)
  Receive Date: 20210309
  Receipt Date: 20210309
  Transmission Date: 20210420
  Serious: Yes (Other)
  Sender: FDA-Public Use
  Company Number: US-ORGANON-2101USA007522

PATIENT
  Age: 30 Year
  Sex: Female
  Weight: 52.15 kg

DRUGS (2)
  1. NEXPLANON [Suspect]
     Active Substance: ETONOGESTREL
     Dosage: 1 DOSAGE FORM, LEFT ARM
     Dates: start: 202009, end: 202009
  2. NEXPLANON [Suspect]
     Active Substance: ETONOGESTREL
     Indication: CONTRACEPTION
     Dosage: 1 IMPLANT, LEFT ARM
     Dates: start: 202009, end: 202012

REACTIONS (13)
  - Paraesthesia [Recovering/Resolving]
  - Pain in extremity [Recovering/Resolving]
  - Device issue [Recovered/Resolved]
  - Complication associated with device [Recovered/Resolved]
  - Scar [Recovering/Resolving]
  - Complication of device removal [Recovered/Resolved]
  - Device placement issue [Recovered/Resolved]
  - Complication of device removal [Recovered/Resolved]
  - Complication of device insertion [Recovered/Resolved]
  - Feeling abnormal [Recovering/Resolving]
  - Device dislocation [Recovered/Resolved]
  - Surgery [Unknown]
  - Hypoaesthesia [Recovering/Resolving]

NARRATIVE: CASE EVENT DATE: 2020
